FAERS Safety Report 8513956-2 (Version None)
Quarter: 2012Q3

REPORT INFORMATION
  Report Type: 
  Country: None (occurrence: None)
  Receive Date: 20120717
  Receipt Date: 20120712
  Transmission Date: 20120928
  Serious: Yes (Life-Threatening)
  Sender: FDA-Public Use
  Company Number: JP-ELI_LILLY_AND_COMPANY-JP201207003969

PATIENT
  Sex: Female

DRUGS (8)
  1. DULOXETINE HYDROCHLORIDE [Suspect]
     Dosage: 40 MG, QD
     Route: 048
     Dates: start: 20100831, end: 20100909
  2. LENDORMIN [Concomitant]
     Indication: INSOMNIA
     Dosage: UNK
  3. DULOXETINE HYDROCHLORIDE [Suspect]
     Indication: DYSTHYMIC DISORDER
     Dosage: 20 MG, QD
     Route: 048
     Dates: start: 20100824, end: 20100830
  4. DULOXETINE HYDROCHLORIDE [Suspect]
     Dosage: 20 MG, QD
     Route: 048
     Dates: start: 20100925, end: 20101122
  5. DULOXETINE HYDROCHLORIDE [Suspect]
     Dosage: 20 MG, QD
     Route: 048
     Dates: start: 20100910, end: 20100916
  6. LORAZEPAM [Concomitant]
     Dosage: UNK, PRN
  7. DULOXETINE HYDROCHLORIDE [Suspect]
     Dosage: 40 MG, QD
     Route: 048
     Dates: start: 20100917, end: 20100924
  8. MEILAX [Concomitant]
     Dosage: UNK

REACTIONS (2)
  - DYSPNOEA [None]
  - CHEST PAIN [None]
